FAERS Safety Report 7294739-0 (Version None)
Quarter: 2011Q1

REPORT INFORMATION
  Report Type: 
  Country: None (occurrence: None)
  Receive Date: 20110216
  Receipt Date: 20110215
  Transmission Date: 20110831
  Serious: No
  Sender: FDA-Public Use
  Company Number: US-ROXANE LABORATORIES, INC.-2011-RO-00189RO

PATIENT
  Sex: Female

DRUGS (1)
  1. PERINDOPRIL ERBUMINE [Suspect]

REACTIONS (1)
  - DRUG INEFFECTIVE [None]
